FAERS Safety Report 5941679-2 (Version None)
Quarter: 2008Q4

REPORT INFORMATION
  Report Type: 
  Country: None (occurrence: None)
  Receive Date: 20081031
  Receipt Date: 20070905
  Transmission Date: 20090506
  Serious: Yes (Hospitalization, Other)
  Sender: FDA-Public Use
  Company Number: 2007US002136

PATIENT
  Age: 6 Year
  Sex: Male
  Weight: 19.4 kg

DRUGS (8)
  1. PROGRAF [Suspect]
     Indication: PROPHYLAXIS AGAINST TRANSPLANT REJECTION
     Dates: start: 20050913
  2. DACLIZUMAB(DACLIZUMAB) [Suspect]
     Indication: PROPHYLAXIS AGAINST TRANSPLANT REJECTION
     Dosage: 15 MG, WEEKLY IV NOS
     Route: 042
     Dates: start: 20050914, end: 20050914
  3. DACLIZUMAB(DACLIZUMAB) [Suspect]
     Indication: PROPHYLAXIS AGAINST TRANSPLANT REJECTION
     Dosage: 15 MG, WEEKLY IV NOS
     Route: 042
     Dates: start: 20050926, end: 20050926
  4. DACLIZUMAB(DACLIZUMAB) [Suspect]
     Indication: PROPHYLAXIS AGAINST TRANSPLANT REJECTION
     Dosage: 15 MG, WEEKLY IV NOS
     Route: 042
     Dates: start: 20051010, end: 20051010
  5. DACLIZUMAB(DACLIZUMAB) [Suspect]
     Indication: PROPHYLAXIS AGAINST TRANSPLANT REJECTION
     Dosage: 15 MG, WEEKLY IV NOS
     Route: 042
     Dates: start: 20051024, end: 20051024
  6. DACLIZUMAB(DACLIZUMAB) [Suspect]
     Indication: PROPHYLAXIS AGAINST TRANSPLANT REJECTION
     Dosage: 15 MG, WEEKLY IV NOS
     Route: 042
     Dates: start: 20051114, end: 20051114
  7. ERYTHROPOIETIN (ERYTHROPOIETIN) [Concomitant]
  8. NYSTATIN [Concomitant]

REACTIONS (19)
  - ADHESION [None]
  - ATELECTASIS [None]
  - CANDIDURIA [None]
  - CATHETER RELATED COMPLICATION [None]
  - COLLAPSE OF LUNG [None]
  - DIARRHOEA [None]
  - DIASTOLIC HYPERTENSION [None]
  - GASTROINTESTINAL NECROSIS [None]
  - HAEMODIALYSIS [None]
  - KLEBSIELLA INFECTION [None]
  - OCCULT BLOOD [None]
  - PNEUMOTHORAX [None]
  - PROCEDURAL NAUSEA [None]
  - PROCEDURAL VOMITING [None]
  - RENAL IMPAIRMENT [None]
  - SMALL INTESTINAL OBSTRUCTION [None]
  - URETERAL STENT INSERTION [None]
  - URETERIC OBSTRUCTION [None]
  - UROSEPSIS [None]
